FAERS Safety Report 5619500-1 (Version None)
Quarter: 2008Q1

REPORT INFORMATION
  Report Type: 
  Country: None (occurrence: None)
  Receive Date: 20080111
  Receipt Date: 20070925
  Transmission Date: 20080703
  Serious: Yes (Other)
  Sender: FDA-Public Use
  Company Number: 17554

PATIENT
  Sex: Female

DRUGS (6)
  1. EPIRUBICIN [Suspect]
     Indication: SMALL INTESTINE CARCINOMA
     Dates: start: 20070727, end: 20070817
  2. OXALIPLATIN [Suspect]
     Indication: SMALL INTESTINE CARCINOMA
     Dates: start: 20070730
  3. CAPECITABINE [Concomitant]
  4. FERROUS SUL ELX [Concomitant]
  5. STOOL SOFTENER [Concomitant]
  6. OMEPRAZOLE [Concomitant]

REACTIONS (2)
  - CHEMOTHERAPY EXTRAVASATION MANAGEMENT [None]
  - INFUSION SITE EXTRAVASATION [None]
